FAERS Safety Report 19169708 (Version 1)
Quarter: 2021Q2

REPORT INFORMATION
  Report Type: Spontaneous
  Country: US (occurrence: US)
  Receive Date: 20210422
  Receipt Date: 20210422
  Transmission Date: 20210717
  Serious: Yes (Life-Threatening, Hospitalization, Other)
  Sender: FDA-Public Use
  Company Number: US-ASTELLAS-2020US028514

PATIENT
  Age: 80 Year
  Sex: Male

DRUGS (8)
  1. LEXISCAN [Suspect]
     Active Substance: REGADENOSON
     Indication: CARDIAC STRESS TEST
     Dosage: 0.4 MG, UNKNOWN FREQ.(ONCE)
     Route: 065
     Dates: start: 20200818, end: 20200818
  2. LEXISCAN [Suspect]
     Active Substance: REGADENOSON
     Indication: CARDIAC STRESS TEST
     Dosage: 0.4 MG, UNKNOWN FREQ.(ONCE)
     Route: 065
     Dates: start: 20200818, end: 20200818
  3. LEXISCAN [Suspect]
     Active Substance: REGADENOSON
     Indication: CARDIAC STRESS TEST
     Dosage: 0.4 MG, UNKNOWN FREQ.(ONCE)
     Route: 065
     Dates: start: 20200818, end: 20200818
  4. ZOCOR [Concomitant]
     Active Substance: SIMVASTATIN
     Indication: BLOOD CHOLESTEROL ABNORMAL
     Dosage: 40 MG, ONCE DAILY (NIGHTLY)
     Route: 065
     Dates: start: 20160808
  5. LOPRESSOR [Concomitant]
     Active Substance: METOPROLOL TARTRATE
     Indication: CORONARY ARTERY DISEASE
     Route: 065
     Dates: start: 20181212
  6. LEXISCAN [Suspect]
     Active Substance: REGADENOSON
     Indication: CARDIAC STRESS TEST
     Dosage: 0.4 MG, UNKNOWN FREQ.(ONCE)
     Route: 065
     Dates: start: 20200818, end: 20200818
  7. ASPIRIN (E.C.) [Concomitant]
     Active Substance: ASPIRIN
     Indication: CORONARY ARTERY DISEASE
     Dosage: 81 MG, ONCE DAILY.(DAILY)
     Route: 065
     Dates: start: 20160808
  8. ALBUTEROL [SALBUTAMOL SULFATE] [Concomitant]
     Active Substance: ALBUTEROL SULFATE
     Indication: WHEEZING
     Dosage: 2 DF, EVERY 6 HOURS (PRN)
     Route: 065
     Dates: start: 20171012

REACTIONS (3)
  - Respiratory arrest [Recovered/Resolved]
  - Acute myocardial infarction [Recovered/Resolved]
  - Incorrect product administration duration [Unknown]

NARRATIVE: CASE EVENT DATE: 20200818
